FAERS Safety Report 7687702-9 (Version None)
Quarter: 2011Q3

REPORT INFORMATION
  Report Type: 
  Country: None (occurrence: None)
  Receive Date: 20110817
  Receipt Date: 20110728
  Transmission Date: 20111222
  Serious: No
  Sender: FDA-Public Use
  Company Number: US-BAYER-2011-055594

PATIENT
  Age: 29 Year
  Sex: Female

DRUGS (5)
  1. CORTICOSTEROIDS [Concomitant]
  2. BETASERON [Suspect]
     Indication: MULTIPLE SCLEROSIS
     Dosage: 2 MIU, QOD
     Dates: start: 20110624
  3. IBUPROFEN [Concomitant]
  4. BETASERON [Suspect]
     Dosage: 6 MIU, QOD
  5. NAPROXEN [Concomitant]

REACTIONS (6)
  - INJECTION SITE ERYTHEMA [None]
  - SKIN WARM [None]
  - INFLUENZA LIKE ILLNESS [None]
  - INJECTION SITE SWELLING [None]
  - HYPOAESTHESIA [None]
  - NAUSEA [None]
